FAERS Safety Report 10979146 (Version 1)
Quarter: 2015Q1

REPORT INFORMATION
  Report Type: Spontaneous
  Country: US (occurrence: None)
  Receive Date: 20150226
  Receipt Date: 20150226
  Transmission Date: 20150721
  Serious: Yes (Other)
  Sender: FDA-Public Use
  Company Number: TPA2013A04990

PATIENT
  Age: 80 Year
  Sex: Male

DRUGS (4)
  1. ACTOS [Suspect]
     Active Substance: PIOGLITAZONE HYDROCHLORIDE
     Indication: TYPE 2 DIABETES MELLITUS
     Dates: start: 20050811, end: 20060408
  2. NOVOLOG [Concomitant]
     Active Substance: INSULIN ASPART
  3. PRANDIN (REPAGLINIDE) [Concomitant]
  4. BYETTA (EXENATIDE) [Concomitant]

REACTIONS (1)
  - Bladder cancer [None]

NARRATIVE: CASE EVENT DATE: 20100902
